FAERS Safety Report 5414558-7 (Version None)
Quarter: 2007Q3

REPORT INFORMATION
  Report Type: 
  Country: None (occurrence: None)
  Receive Date: 20070731
  Receipt Date: 20070407
  Transmission Date: 20080115
  Serious: No
  Sender: FDA-Public Use
  Company Number: 2007PV027641

PATIENT
  Age: 65 Year
  Sex: Male
  Weight: 99.3 kg

DRUGS (12)
  1. EXENATIDE [Suspect]
     Indication: TYPE 2 DIABETES MELLITUS
     Dosage: 5 UG, SQ  10 UG, 2/D, SQ  10 UG, 2/D, SQ   5 UG, 2/D, SQ   10 UG, 2/D, SQ   5 UG, 2/D, SQ
     Route: 058
     Dates: start: 20061101, end: 20061201
  2. EXENATIDE [Suspect]
     Indication: TYPE 2 DIABETES MELLITUS
     Dosage: 5 UG, SQ  10 UG, 2/D, SQ  10 UG, 2/D, SQ   5 UG, 2/D, SQ   10 UG, 2/D, SQ   5 UG, 2/D, SQ
     Route: 058
     Dates: start: 20061201, end: 20061231
  3. EXENATIDE [Suspect]
     Indication: TYPE 2 DIABETES MELLITUS
     Dosage: 5 UG, SQ  10 UG, 2/D, SQ  10 UG, 2/D, SQ   5 UG, 2/D, SQ   10 UG, 2/D, SQ   5 UG, 2/D, SQ
     Route: 058
     Dates: start: 20061101
  4. EXENATIDE [Suspect]
     Indication: TYPE 2 DIABETES MELLITUS
     Dosage: 5 UG, SQ  10 UG, 2/D, SQ  10 UG, 2/D, SQ   5 UG, 2/D, SQ   10 UG, 2/D, SQ   5 UG, 2/D, SQ
     Route: 058
     Dates: start: 20061201
  5. EXENATIDE [Suspect]
     Indication: TYPE 2 DIABETES MELLITUS
     Dosage: 5 UG, SQ  10 UG, 2/D, SQ  10 UG, 2/D, SQ   5 UG, 2/D, SQ   10 UG, 2/D, SQ   5 UG, 2/D, SQ
     Route: 058
     Dates: start: 20070101
  6. EXENATIDE [Suspect]
     Indication: TYPE 2 DIABETES MELLITUS
     Dosage: 5 UG, SQ  10 UG, 2/D, SQ  10 UG, 2/D, SQ   5 UG, 2/D, SQ   10 UG, 2/D, SQ   5 UG, 2/D, SQ
     Route: 058
     Dates: start: 20070101
  7. EXENATIDE           (EXENATIDE) PEN, DISPOSABLE [Suspect]
  8. EXENATIDE                (EXENATIDE) PEN, DISPOSABLE [Suspect]
  9. METFORMIN HCL [Concomitant]
  10. ACTOS [Concomitant]
  11. GLYBURIDE [Concomitant]
  12. LISINOPRIL [Concomitant]

REACTIONS (3)
  - BLOOD GLUCOSE INCREASED [None]
  - INCORRECT DOSE ADMINISTERED [None]
  - WEIGHT DECREASED [None]
